FAERS Safety Report 4802150-4 (Version None)
Quarter: 2005Q4

REPORT INFORMATION
  Report Type: 
  Country: None (occurrence: None)
  Receive Date: 20051018
  Receipt Date: 20051007
  Transmission Date: 20060501
  Serious: Yes (Hospitalization)
  Sender: FDA-Public Use
  Company Number: US-MERCK-0510USA05615

PATIENT
  Age: 75 Year
  Sex: Female
  Weight: 102 kg

DRUGS (40)
  1. VIOXX [Suspect]
     Indication: ARTHRITIS
     Route: 048
     Dates: start: 19990820, end: 20030401
  2. HYDROXYZINE PAMOATE [Concomitant]
     Route: 065
  3. FLUOCINONIDE [Concomitant]
     Route: 065
  4. ZITHROMAX [Concomitant]
     Route: 065
  5. ALBUTEROL [Concomitant]
     Route: 065
  6. ELOCON [Concomitant]
     Route: 065
  7. AUGMENTIN '125' [Concomitant]
     Route: 065
  8. COLYTE [Concomitant]
     Route: 065
  9. BISACODYL [Concomitant]
     Route: 065
  10. BRETHINE [Concomitant]
     Route: 065
  11. REGULOID [Concomitant]
     Route: 065
  12. CELEBREX [Concomitant]
     Route: 065
  13. VITAMINS (UNSPECIFIED) [Concomitant]
     Route: 065
  14. AMITRIPTYLINE HYDROCHLORIDE [Concomitant]
     Route: 065
  15. CLARITIN [Concomitant]
     Route: 065
  16. CALCIUM (UNSPECIFIED) [Concomitant]
     Route: 065
  17. ACETAMINOPHEN [Concomitant]
     Route: 065
  18. SODIUM BICARBONATE AND SUCROSE [Concomitant]
     Route: 065
  19. SINGULAIR [Concomitant]
     Route: 065
  20. CLOBETASOL PROPIONATE [Concomitant]
     Route: 065
  21. [THERAPY UNSPECIFIED] [Concomitant]
     Route: 065
  22. AVALIDE [Concomitant]
     Route: 065
  23. DIPROLENE [Concomitant]
     Route: 065
  24. CEPHALEXIN [Concomitant]
     Route: 065
  25. PRAVACHOL [Concomitant]
     Route: 065
  26. AMBIEN [Concomitant]
     Route: 065
  27. PULMICORT [Concomitant]
     Route: 065
  28. IPRATROPIUM BROMIDE [Concomitant]
     Route: 065
  29. DESONIDE [Concomitant]
     Route: 065
  30. KETOCONAZOLE [Concomitant]
     Route: 065
  31. DIPHENHYDRAMINE HYDROCHLORIDE [Concomitant]
     Route: 065
  32. PREDNISONE [Concomitant]
     Route: 065
  33. FAMOTIDINE [Concomitant]
     Route: 065
  34. FLUOCINOLONE ACETONIDE [Concomitant]
     Route: 065
  35. ZOLOFT [Concomitant]
     Route: 065
  36. ADVAIR DISKUS 100/50 [Concomitant]
     Route: 065
  37. DOCUSATE SODIUM [Concomitant]
     Route: 065
  38. GASTROINTESTINAL PREPARATIONS (UNSPECIFIED) [Concomitant]
     Route: 065
  39. GRISEOFULVIN [Concomitant]
     Route: 065
  40. ULTRAM [Concomitant]
     Route: 065

REACTIONS (11)
  - ABDOMINAL PAIN [None]
  - ARTHRALGIA [None]
  - CORONARY ARTERY DISEASE [None]
  - DIVERTICULUM [None]
  - DIZZINESS [None]
  - ECCHYMOSIS [None]
  - KNEE ARTHROPLASTY [None]
  - MYOCARDIAL INFARCTION [None]
  - RECTAL HAEMORRHAGE [None]
  - URINARY TRACT INFECTION [None]
  - VENOUS INSUFFICIENCY [None]
